FAERS Safety Report 24602911 (Version 1)
Quarter: 2024Q4

REPORT INFORMATION
  Report Type: Spontaneous
  Country: US (occurrence: None)
  Receive Date: 20241109
  Receipt Date: 20241109
  Transmission Date: 20250114
  Serious: Yes (Hospitalization)
  Sender: Public
  Company Number: None

PATIENT
  Sex: Male
  Weight: 74 kg

DRUGS (4)
  1. CISPLATIN [Suspect]
     Active Substance: CISPLATIN
     Dates: end: 20220314
  2. FILGRASTIM [Suspect]
     Active Substance: FILGRASTIM
     Dates: end: 20220320
  3. IFOSFAMIDE [Suspect]
     Active Substance: IFOSFAMIDE
     Dates: start: 20220314, end: 20220320
  4. TAXOL [Suspect]
     Active Substance: PACLITAXEL
     Dates: end: 20220310

REACTIONS (1)
  - Neutropenic sepsis [None]

NARRATIVE: CASE EVENT DATE: 20220320
